FAERS Safety Report 15427621 (Version 1)
Quarter: 2018Q3

REPORT INFORMATION
  Report Type: Spontaneous
  Country: US (occurrence: US)
  Receive Date: 20180925
  Receipt Date: 20180925
  Transmission Date: 20181010
  Serious: Yes (Other)
  Sender: FDA-Public Use
  Company Number: US-ASTRAZENECA-2018SF20633

PATIENT
  Age: 3831 Week
  Sex: Female
  Weight: 63.5 kg

DRUGS (6)
  1. METOPROLOL TARTRATE. [Suspect]
     Active Substance: METOPROLOL TARTRATE
     Route: 065
  2. LISINOPRIL. [Suspect]
     Active Substance: LISINOPRIL
     Indication: ILL-DEFINED DISORDER
     Route: 048
  3. BRILINTA [Suspect]
     Active Substance: TICAGRELOR
     Indication: STENT PLACEMENT
     Route: 048
     Dates: start: 201809
  4. ASPIRIN? LOW DOSE BAYER [Concomitant]
     Indication: ILL-DEFINED DISORDER
     Dosage: AT NIGHT
     Route: 048
  5. ISOSORBIDE MONONITRATE. [Concomitant]
     Active Substance: ISOSORBIDE MONONITRATE
     Route: 048
     Dates: start: 20180907
  6. PRAVASTATIN. [Concomitant]
     Active Substance: PRAVASTATIN
     Indication: ILL-DEFINED DISORDER
     Route: 048

REACTIONS (11)
  - Dyspnoea [Not Recovered/Not Resolved]
  - Overweight [Unknown]
  - Contusion [Recovering/Resolving]
  - Gait disturbance [Not Recovered/Not Resolved]
  - Hypersensitivity [Unknown]
  - Heart rate decreased [Unknown]
  - Chest pain [Unknown]
  - Computerised tomogram coronary artery abnormal [Unknown]
  - Coronary artery occlusion [Unknown]
  - Hypotension [Unknown]
  - Skin discolouration [Unknown]
